FAERS Safety Report 18096494 (Version 1)
Quarter: 2020Q3

REPORT INFORMATION
  Report Type: Spontaneous
  Country: ES (occurrence: ES)
  Receive Date: 20200731
  Receipt Date: 20200731
  Transmission Date: 20201103
  Serious: Yes (Life-Threatening, Hospitalization, Other)
  Sender: FDA-Public Use
  Company Number: ES-LEADINGPHARMA-ES-2020LEALIT00120

PATIENT
  Age: 60 Year
  Sex: Female
  Weight: 57.7 kg

DRUGS (4)
  1. HYDROCHLOROTHIAZIDE TABLETS USP [Suspect]
     Active Substance: HYDROCHLOROTHIAZIDE
     Indication: HYPERTENSION
     Route: 065
  2. INSULIN [Interacting]
     Active Substance: INSULIN NOS
     Indication: FULMINANT TYPE 1 DIABETES MELLITUS
     Route: 042
  3. GLUCAGON. [Interacting]
     Active Substance: GLUCAGON
     Indication: FULMINANT TYPE 1 DIABETES MELLITUS
     Route: 042
  4. INSULIN [Interacting]
     Active Substance: INSULIN NOS
     Route: 065

REACTIONS (2)
  - Fulminant type 1 diabetes mellitus [Recovered/Resolved]
  - Confusional state [Recovered/Resolved]
